FAERS Safety Report 4474684-6 (Version None)
Quarter: 2004Q4

REPORT INFORMATION
  Report Type: 
  Country: None (occurrence: None)
  Receive Date: 20041012
  Receipt Date: 20041004
  Transmission Date: 20050328
  Serious: Yes (Life-Threatening)
  Sender: FDA-Public Use
  Company Number: 2004GB02368

PATIENT
  Age: 45 Year
  Sex: Female

DRUGS (3)
  1. ZOLADEX [Suspect]
     Indication: DYSMENORRHOEA
     Dates: start: 20030301
  2. ZOLADEX [Suspect]
     Indication: PELVIC PAIN
     Dates: start: 20030301
  3. DUPHASTON [Concomitant]

REACTIONS (6)
  - HYPOAESTHESIA [None]
  - OEDEMA MOUTH [None]
  - OROPHARYNGEAL SWELLING [None]
  - PANIC DISORDER [None]
  - PARAESTHESIA ORAL [None]
  - SWOLLEN TONGUE [None]
